FAERS Safety Report 7186970 (Version 8)
Quarter: 2012Q4

REPORT INFORMATION
  Report Type: 
  Country: US (occurrence: US)
  Receive Date: 20091124
  Receipt Date: 20120920
  Transmission Date: 20130627
  Serious: Yes (Hospitalization, Other)
  Sender: FDA-Public Use
  Company Number: US-BAYER-200939910NA

PATIENT
  Age: 22 Year
  Sex: Female
  Weight: 68.03 kg

DRUGS (4)
  1. YASMIN [Suspect]
     Indication: ORAL CONTRACEPTION
     Dosage: UNK UNK, QD
     Route: 048
     Dates: start: 200409, end: 200608
  2. YAZ [Suspect]
     Indication: ORAL CONTRACEPTION
     Dosage: UNK
     Route: 048
     Dates: start: 200608, end: 200610
  3. IBUPROFEN [Concomitant]
  4. PREMARIN [Concomitant]

REACTIONS (15)
  - Cerebrovascular accident [None]
  - Transient ischaemic attack [None]
  - Simple partial seizures [None]
  - Cerebrovascular disorder [None]
  - Nervous system disorder [None]
  - Speech disorder [None]
  - Hypoaesthesia [None]
  - Facial paresis [None]
  - Muscular weakness [None]
  - VIIth nerve paralysis [None]
  - Aphasia [None]
  - Dysaesthesia [None]
  - Joint range of motion decreased [None]
  - Motor dysfunction [None]
  - Cognitive disorder [None]
